FAERS Safety Report 5342591-2 (Version None)
Quarter: 2007Q2

REPORT INFORMATION
  Report Type: 
  Country: None (occurrence: None)
  Receive Date: 20070601
  Receipt Date: 20070103
  Transmission Date: 20071010
  Serious: No
  Sender: FDA-Public Use
  Company Number: A0629674A

PATIENT
  Age: 47 Year
  Sex: Male

DRUGS (2)
  1. AUGMENTIN XR [Suspect]
     Dosage: 2000MG TWICE PER DAY
     Route: 048
     Dates: start: 20061127, end: 20061129
  2. RHINOCORT [Concomitant]

REACTIONS (3)
  - ASTHENIA [None]
  - DIARRHOEA [None]
  - STOMACH DISCOMFORT [None]
